FAERS Safety Report 9130402 (Version 1)
Quarter: 2013Q1

REPORT INFORMATION
  Report Type: Spontaneous
  Country: FR (occurrence: FR)
  Receive Date: 20130228
  Receipt Date: 20130228
  Transmission Date: 20140127
  Serious: No
  Sender: FDA-Public Use
  Company Number: FR-JNJFOC-20130210952

PATIENT
  Age: 84 Year
  Sex: Male

DRUGS (1)
  1. DUROGESIC [Suspect]
     Indication: NEOPLASM MALIGNANT
     Route: 062
     Dates: start: 20130213

REACTIONS (2)
  - Somnolence [Not Recovered/Not Resolved]
  - Drug prescribing error [Unknown]
